FAERS Safety Report 20568819 (Version 2)
Quarter: 2022Q2

REPORT INFORMATION
  Report Type: Spontaneous
  Country: US (occurrence: US)
  Receive Date: 20220308
  Receipt Date: 20220601
  Transmission Date: 20220721
  Serious: Yes (Hospitalization)
  Sender: FDA-Public Use
  Company Number: US-BAUDAX BIO, INC.-BAUDAX-2022-000001

PATIENT
  Age: 42 Year
  Sex: Female

DRUGS (1)
  1. ANJESO [Suspect]
     Active Substance: MELOXICAM
     Indication: Nerve compression
     Dosage: UNK
     Route: 048

REACTIONS (1)
  - Thrombocytopenia [Recovered/Resolved]
